FAERS Safety Report 7001614-5 (Version None)
Quarter: 2010Q3

REPORT INFORMATION
  Report Type: 
  Country: None (occurrence: None)
  Receive Date: 20100920
  Receipt Date: 20100914
  Transmission Date: 20110219
  Serious: Yes (Death, Hospitalization, Other)
  Sender: FDA-Public Use
  Company Number: IT-CELGENEUS-083-21880-10091218

PATIENT
  Age: 19 Year
  Sex: Male

DRUGS (5)
  1. REVLIMID [Suspect]
     Indication: PLASMABLASTIC LYMPHOMA
     Route: 048
     Dates: start: 20091101
  2. HAART THERAPY [Concomitant]
     Route: 065
  3. RED BLOOD CELLS [Concomitant]
     Indication: PRODUCT USED FOR UNKNOWN INDICATION
     Route: 051
  4. NEUPOGEN [Concomitant]
     Indication: PRODUCT USED FOR UNKNOWN INDICATION
     Route: 065
  5. PLATELETS [Concomitant]
     Indication: PRODUCT USED FOR UNKNOWN INDICATION
     Route: 051

REACTIONS (6)
  - ANAEMIA [None]
  - COAGULOPATHY [None]
  - LEUKOPENIA [None]
  - PLASMABLASTIC LYMPHOMA [None]
  - PNEUMONIA LEGIONELLA [None]
  - THROMBOCYTOPENIA [None]
